FAERS Safety Report 9099163 (Version 2)
Quarter: 2013Q1

REPORT INFORMATION
  Report Type: Spontaneous
  Country: US (occurrence: US)
  Receive Date: 20130214
  Receipt Date: 20130306
  Transmission Date: 20140127
  Serious: Yes (Other)
  Sender: FDA-Public Use
  Company Number: CHPA2013US003058

PATIENT
  Sex: Male

DRUGS (5)
  1. PREVACID 24HR 15MG [Suspect]
     Indication: DYSPEPSIA
     Dosage: 15 MG, QD
     Route: 048
  2. PREVACID 24HR 15MG [Suspect]
     Dosage: UNK, QOD
  3. PREVACID 24HR 15MG [Suspect]
     Dosage: UNK, THREE TIMES A WEEK
  4. FENOFIBRATE [Concomitant]
     Dosage: 150 MG, UNK
  5. PRAVASTATIN [Concomitant]
     Dosage: 20 MG, UNK

REACTIONS (4)
  - Neoplasm malignant [Recovered/Resolved]
  - Off label use [Unknown]
  - Disease recurrence [Unknown]
  - Incorrect drug administration duration [Unknown]
